FAERS Safety Report 10578158 (Version 2)
Quarter: 2014Q4

REPORT INFORMATION
  Report Type: Spontaneous
  Country: GB (occurrence: GB)
  Receive Date: 20141112
  Receipt Date: 20141121
  Transmission Date: 20150529
  Serious: Yes (Hospitalization, Other)
  Sender: FDA-Public Use
  Company Number: GB-AUROBINDO-AUR-APL-2014-11649

PATIENT
  Age: 41 Year
  Sex: Female

DRUGS (3)
  1. CEFTRIAXONE. [Suspect]
     Active Substance: CEFTRIAXONE
     Indication: URINARY TRACT INFECTION
     Dosage: UNK
     Route: 042
  2. ERYTHROMYCIN 250 MG [Suspect]
     Active Substance: ERYTHROMYCIN
     Indication: PRODUCT USED FOR UNKNOWN INDICATION
     Dosage: 250 MG, FOUR TIMES/DAY
     Route: 065
  3. AMOXICILLIN+CLAVULANIC ACID [Suspect]
     Active Substance: AMOXICILLIN\CLAVULANIC ACID
     Indication: URINARY TRACT INFECTION
     Dosage: UNK
     Route: 048

REACTIONS (17)
  - Malaise [Unknown]
  - Foetal hypokinesia [Unknown]
  - Vaginal haemorrhage [Unknown]
  - Premature labour [Unknown]
  - Oligohydramnios [Unknown]
  - Premature rupture of membranes [Unknown]
  - Exposure during pregnancy [Unknown]
  - Inflammatory marker test [Unknown]
  - Alanine aminotransferase increased [Unknown]
  - Abdominal pain [Unknown]
  - Decreased appetite [Unknown]
  - Chills [Unknown]
  - Body temperature increased [Unknown]
  - Vulvovaginal candidiasis [Recovered/Resolved]
  - Back pain [Unknown]
  - Foetal death [Unknown]
  - Pollakiuria [Unknown]

NARRATIVE: CASE EVENT DATE: 20120810
